FAERS Safety Report 25706199 (Version 1)
Quarter: 2025Q3

REPORT INFORMATION
  Report Type: Spontaneous
  Country: US (occurrence: US)
  Receive Date: 20250820
  Receipt Date: 20250820
  Transmission Date: 20251021
  Serious: No
  Sender: SPRINGWORKS THERAPEUTIC
  Company Number: US-SPRINGWORKS THERAPEUTICS-SW-002971

PATIENT

DRUGS (2)
  1. GOMEKLI [Suspect]
     Active Substance: MIRDAMETINIB
     Indication: Glioma
  2. GOMEKLI [Suspect]
     Active Substance: MIRDAMETINIB
     Indication: Neurofibromatosis

REACTIONS (8)
  - Muscle spasms [Unknown]
  - Acne [Unknown]
  - Pruritus [Unknown]
  - Rash macular [Unknown]
  - Rash [Unknown]
  - Diarrhoea [Unknown]
  - Constipation [Unknown]
  - Off label use [Unknown]

NARRATIVE: CASE EVENT DATE: 20250601
